FAERS Safety Report 5303368-7 (Version None)
Quarter: 2007Q2

REPORT INFORMATION
  Report Type: 
  Country: None (occurrence: None)
  Receive Date: 20070420
  Receipt Date: 20070410
  Transmission Date: 20071010
  Serious: Yes (Hospitalization)
  Sender: FDA-Public Use
  Company Number: US-JNJFOC-20070402524

PATIENT
  Sex: Male
  Weight: 97.07 kg

DRUGS (15)
  1. FENTANYL TRANSDERMAL SYSTEM [Suspect]
     Indication: BACK PAIN
     Route: 062
  2. GLYCOLAX [Concomitant]
     Indication: CONSTIPATION
     Route: 048
  3. ALTACE [Concomitant]
     Indication: HYPERTENSION
     Route: 048
  4. ACTOS [Concomitant]
     Indication: DIABETES MELLITUS NON-INSULIN-DEPENDENT
     Route: 048
  5. FLOMAX [Concomitant]
     Indication: BENIGN PROSTATIC HYPERPLASIA
     Route: 048
  6. FUROSEMIDE [Concomitant]
     Indication: FLUID RETENTION
     Route: 048
  7. HYDROCODONE [Concomitant]
     Indication: PAIN
     Route: 048
  8. LORAZEPAM [Concomitant]
     Indication: ANXIETY
     Route: 048
  9. OMEPRAZOLE [Concomitant]
     Indication: GASTRIC DISORDER
     Route: 048
  10. SERTRALINE [Concomitant]
     Indication: DEPRESSION
     Route: 048
  11. VYTORIN [Concomitant]
     Indication: BLOOD CHOLESTEROL INCREASED
     Route: 048
  12. IBUPROFEN [Concomitant]
     Indication: PAIN
     Route: 048
  13. SENNA [Concomitant]
     Indication: ABNORMAL FAECES
     Route: 048
  14. CALCIUM [Concomitant]
     Indication: OSTEOPOROSIS
     Route: 065
  15. LIDODERM [Concomitant]
     Indication: PAIN
     Route: 065

REACTIONS (2)
  - APPLICATION SITE REACTION [None]
  - SPINAL CORD COMPRESSION [None]
